FAERS Safety Report 6419418-0 (Version None)
Quarter: 2009Q4

REPORT INFORMATION
  Report Type: 
  Country: None (occurrence: None)
  Receive Date: 20091029
  Receipt Date: 20091022
  Transmission Date: 20100525
  Serious: Yes (Hospitalization)
  Sender: FDA-Public Use
  Company Number: TR-B.I. PHARMACEUTICALS,INC./RIDGEFIELD-2009-DE-06646TK

PATIENT
  Sex: Male
  Weight: 92 kg

DRUGS (1)
  1. MICARDIS [Suspect]
     Indication: HYPERTENSION
     Dosage: 1 ANZ
     Dates: start: 20091002, end: 20091013

REACTIONS (2)
  - HYPOGLYCAEMIA [None]
  - PANCREATITIS [None]
